FAERS Safety Report 7684377-X (Version None)
Quarter: 2011Q3

REPORT INFORMATION
  Report Type: 
  Country: None (occurrence: None)
  Receive Date: 20110816
  Receipt Date: 20110806
  Transmission Date: 20111222
  Serious: Yes (Hospitalization)
  Sender: FDA-Public Use
  Company Number: IN-BIOGENIDEC-2011BI029709

PATIENT
  Age: 42 Year
  Sex: Female

DRUGS (1)
  1. TYSABRI [Suspect]
     Indication: MULTIPLE SCLEROSIS
     Route: 042
     Dates: start: 20110601, end: 20110601

REACTIONS (5)
  - CARDIAC ARREST [None]
  - WHITE BLOOD CELL COUNT DECREASED [None]
  - PAIN IN EXTREMITY [None]
  - ANAEMIA [None]
  - PYREXIA [None]
